FAERS Safety Report 21905401 (Version 1)
Quarter: 2023Q1

REPORT INFORMATION
  Report Type: Spontaneous
  Country: US (occurrence: US)
  Receive Date: 20230124
  Receipt Date: 20230124
  Transmission Date: 20230418
  Serious: No
  Sender: FDA-Public Use
  Company Number: US-MYLANLABS-2023M1006073

PATIENT
  Sex: Female

DRUGS (9)
  1. CYCLOSPORINE [Suspect]
     Active Substance: CYCLOSPORINE
     Indication: Product used for unknown indication
     Dosage: 1 GTT DROPS, BID (TWICE A DAY IN EACH EYE)
     Route: 047
     Dates: start: 20221201, end: 20221215
  2. ROSUVASTATIN CALCIUM [Concomitant]
     Active Substance: ROSUVASTATIN CALCIUM
     Dosage: 20 MILLIGRAM, QD
     Route: 065
  3. FOSINOPRIL SODIUM [Concomitant]
     Active Substance: FOSINOPRIL SODIUM
     Dosage: 40 MILLIGRAM, AM (ONCE)
     Route: 065
  4. SYNTHROID [Concomitant]
     Active Substance: LEVOTHYROXINE SODIUM
     Dosage: 75 MICROGRAM, QD (ONCE MORNING DAILY)
     Route: 065
  5. METOPROLOL SUCCINATE [Concomitant]
     Active Substance: METOPROLOL SUCCINATE
     Dosage: 50 MILLIGRAM, AM (EVERY MORNING)
     Route: 065
  6. ELIQUIS [Concomitant]
     Active Substance: APIXABAN
     Dosage: 5 MILLIGRAM, BID (ONCE EVERY MORNING AND ONE EVERY EVENING
     Route: 065
  7. ALENDRONATE SODIUM [Concomitant]
     Active Substance: ALENDRONATE SODIUM
     Dosage: 70 MILLIGRAM, QW (EVERY MONDAY AT 9 A.M)
     Route: 065
  8. LATANOPROST [Concomitant]
     Active Substance: LATANOPROST
     Indication: Glaucoma
     Dosage: 1 GTT DROPS, PM (ONE DROP IN EACH EYE EVERY EVENING)
     Route: 065
  9. HUMALOG [Concomitant]
     Active Substance: INSULIN LISPRO
     Dosage: UNK
     Route: 065

REACTIONS (9)
  - Rhinorrhoea [Unknown]
  - Dry eye [Unknown]
  - Photophobia [Recovered/Resolved]
  - Rhinalgia [Unknown]
  - Pruritus [Unknown]
  - Vision blurred [Unknown]
  - Eye pain [Recovered/Resolved]
  - Ear pruritus [Unknown]
  - Drug ineffective [Unknown]
